FAERS Safety Report 7742338-6 (Version None)
Quarter: 2011Q3

REPORT INFORMATION
  Report Type: 
  Country: None (occurrence: None)
  Receive Date: 20110829
  Receipt Date: 20110816
  Transmission Date: 20111222
  Serious: Yes (Hospitalization, Disabling, Other)
  Sender: FDA-Public Use
  Company Number: 2010SP065476

PATIENT
  Age: 22 Year
  Sex: Female
  Weight: 68.0396 kg

DRUGS (1)
  1. NUVARING [Suspect]
     Indication: CONTRACEPTION
     Dosage: VAG
     Route: 067
     Dates: start: 20040101, end: 20080101

REACTIONS (24)
  - INFECTION [None]
  - LYMPHOID TISSUE HYPERPLASIA [None]
  - HYPERCOAGULATION [None]
  - DEEP VEIN THROMBOSIS [None]
  - MIGRAINE [None]
  - IMPAIRED DRIVING ABILITY [None]
  - RECTAL POLYP [None]
  - ACNE [None]
  - BLOOD PRESSURE DECREASED [None]
  - GONORRHOEA [None]
  - SYNCOPE [None]
  - PAIN [None]
  - CHANGE OF BOWEL HABIT [None]
  - SUPERIOR SAGITTAL SINUS THROMBOSIS [None]
  - ALCOHOLISM [None]
  - GENITAL HERPES [None]
  - DYSMENORRHOEA [None]
  - PELVIC INFLAMMATORY DISEASE [None]
  - DEHYDRATION [None]
  - ENCEPHALITIS HERPES [None]
  - ABDOMINAL PAIN [None]
  - THROMBOSIS [None]
  - VISION BLURRED [None]
  - BLOOD GLUCOSE INCREASED [None]
